FAERS Safety Report 8941171 (Version 1)
Quarter: 2012Q4

REPORT INFORMATION
  Report Type: 
  Country: BR (occurrence: BR)
  Receive Date: 20121203
  Receipt Date: 20121203
  Transmission Date: 20130627
  Serious: Yes (Other)
  Sender: FDA-Public Use
  Company Number: BR-PFIZER INC-2012301876

PATIENT
  Age: 64 Year
  Sex: Female

DRUGS (7)
  1. ATENOLOL [Suspect]
     Indication: HYPERTENSION
     Dosage: 50 mg, 1x/day
     Route: 048
     Dates: start: 201103
  2. NEXIUM [Suspect]
     Indication: GASTROOESOPHAGEAL REFLUX DISEASE
     Dosage: 20 mg, 2x/day
     Dates: start: 20120705, end: 20120813
  3. NEXIUM [Suspect]
     Dosage: 40 mg, 2x/day
     Route: 048
     Dates: start: 20120814
  4. OMEPRAZOLE [Suspect]
     Dosage: 20 mg, 2x/day
     Route: 048
     Dates: end: 20120704
  5. MOTILIUM [Suspect]
     Dosage: UNK
     Route: 048
  6. RANITIDINE [Suspect]
     Dosage: UNK
     Route: 048
  7. CARVEDILOL [Concomitant]
     Indication: HYPERTENSION
     Route: 048

REACTIONS (11)
  - Gastrooesophageal reflux disease [Unknown]
  - Cough [Recovering/Resolving]
  - Hiatus hernia [Unknown]
  - Gastritis [Unknown]
  - Gastric disorder [Unknown]
  - Sinus disorder [Unknown]
  - Kyphosis [Unknown]
  - Abdominal pain upper [Unknown]
  - Chest pain [Unknown]
  - Salivary hypersecretion [Unknown]
  - Rhinitis [Unknown]
